FAERS Safety Report 7321741-2 (Version None)
Quarter: 2011Q1

REPORT INFORMATION
  Report Type: 
  Country: None (occurrence: None)
  Receive Date: 20110228
  Receipt Date: 20110221
  Transmission Date: 20110831
  Serious: Yes (Other)
  Sender: FDA-Public Use
  Company Number: CHPA2011US03090

PATIENT
  Sex: Female

DRUGS (2)
  1. PREVACID 24 HR [Suspect]
     Dosage: 15 MG, QD
     Route: 048
     Dates: start: 20100101, end: 20110201
  2. PREVACID 24 HR [Suspect]
     Indication: GASTROOESOPHAGEAL REFLUX DISEASE
     Dosage: 30 MG, BID
     Route: 048
     Dates: start: 20110201

REACTIONS (6)
  - HELICOBACTER INFECTION [None]
  - INTENTIONAL DRUG MISUSE [None]
  - CONDITION AGGRAVATED [None]
  - OFF LABEL USE [None]
  - OVERDOSE [None]
  - MUSCLE SPASMS [None]
